FAERS Safety Report 20890999 (Version 2)
Quarter: 2022Q2

REPORT INFORMATION
  Report Type: Spontaneous
  Country: NL (occurrence: NL)
  Receive Date: 20220530
  Receipt Date: 20220530
  Transmission Date: 20220721
  Serious: No
  Sender: FDA-Public Use
  Company Number: NL-LUPIN PHARMACEUTICALS INC.-2022-07974

PATIENT
  Age: 14 Year
  Sex: Female

DRUGS (2)
  1. DEXTROAMPHETAMINE [Suspect]
     Active Substance: DEXTROAMPHETAMINE
     Indication: Hypothalamo-pituitary disorder
     Dosage: 10 MILLIGRAM, QD
     Route: 065
  2. DEXTROAMPHETAMINE [Suspect]
     Active Substance: DEXTROAMPHETAMINE
     Indication: Obesity
     Dosage: 20 MILLIGRAM, QD
     Route: 065

REACTIONS (1)
  - Off label use [Unknown]
